FAERS Safety Report 10067343 (Version 1)
Quarter: 2014Q2

REPORT INFORMATION
  Report Type: Spontaneous
  Country: US (occurrence: None)
  Receive Date: 20140408
  Receipt Date: 20140408
  Transmission Date: 20141212
  Serious: Yes (Life-Threatening, Disabling, Other)
  Sender: FDA-Public Use
  Company Number: None

PATIENT
  Sex: Male
  Weight: 87.54 kg

DRUGS (5)
  1. METOPROLOL [Suspect]
     Dates: start: 2008, end: 2012
  2. INDOMETHACIN [Suspect]
     Dates: start: 2011
  3. PRAVASTATIN [Suspect]
     Dates: start: 2008, end: 2012
  4. METFORMIN [Suspect]
     Dates: start: 2011
  5. ULORIC [Suspect]
     Dates: start: 2014

REACTIONS (11)
  - Heart rate increased [None]
  - Muscular weakness [None]
  - Ligament disorder [None]
  - Bone disorder [None]
  - Muscular weakness [None]
  - Pharyngeal oedema [None]
  - Dyspnoea [None]
  - Dyspepsia [None]
  - Drug ineffective [None]
  - Pharyngeal inflammation [None]
  - Gastric disorder [None]
